FAERS Safety Report 20742203 (Version 1)
Quarter: 2022Q2

REPORT INFORMATION
  Report Type: Spontaneous
  Country: US (occurrence: US)
  Receive Date: 20220423
  Receipt Date: 20220423
  Transmission Date: 20220720
  Serious: Yes (Death, Other)
  Sender: FDA-Public Use
  Company Number: US-AMGEN-USASP2022066476

PATIENT

DRUGS (3)
  1. TRASTUZUMAB [Suspect]
     Active Substance: TRASTUZUMAB
     Indication: Colon cancer
     Route: 065
  2. PANITUMUMAB [Suspect]
     Active Substance: PANITUMUMAB
     Indication: Product used for unknown indication
     Route: 065
  3. PERTUZUMAB [Suspect]
     Active Substance: PERTUZUMAB
     Indication: Colon cancer
     Route: 065

REACTIONS (8)
  - Death [Fatal]
  - Cholangiocarcinoma [Unknown]
  - Non-small cell lung cancer [Unknown]
  - Colon cancer metastatic [Unknown]
  - Glioblastoma [Unknown]
  - Therapy partial responder [Unknown]
  - Toxicity to various agents [Unknown]
  - General physical health deterioration [Unknown]
